FAERS Safety Report 5675910-8 (Version None)
Quarter: 2008Q1

REPORT INFORMATION
  Report Type: 
  Country: None (occurrence: None)
  Receive Date: 20080321
  Receipt Date: 20080319
  Transmission Date: 20080703
  Serious: Yes (Hospitalization)
  Sender: FDA-Public Use
  Company Number: B0511159A

PATIENT
  Age: 76 Year
  Sex: Male

DRUGS (4)
  1. SEREVENT [Suspect]
     Dosage: 50MCG TWICE PER DAY
     Route: 055
     Dates: start: 20070621, end: 20070703
  2. BLOPRESS [Concomitant]
     Route: 048
  3. URINORM [Concomitant]
     Route: 048
  4. KLARICID [Concomitant]
     Route: 048

REACTIONS (1)
  - FALL [None]
